FAERS Safety Report 13452425 (Version 1)
Quarter: 2017Q2

REPORT INFORMATION
  Report Type: Spontaneous
  Country: US (occurrence: US)
  Receive Date: 20170418
  Receipt Date: 20170418
  Transmission Date: 20170830
  Serious: No
  Sender: FDA-Public Use
  Company Number: US-AMGEN-USASP2017048949

PATIENT
  Age: 19 Year
  Sex: Female

DRUGS (1)
  1. CORLANOR [Suspect]
     Active Substance: IVABRADINE HYDROCHLORIDE
     Indication: AUTONOMIC NEUROPATHY
     Dosage: 5 MG, QD
     Route: 065
     Dates: start: 2016

REACTIONS (4)
  - Dizziness [Unknown]
  - Mobility decreased [Unknown]
  - Off label use [Unknown]
  - Nausea [Unknown]
